FAERS Safety Report 13012075 (Version 14)
Quarter: 2017Q3

REPORT INFORMATION
  Report Type: Report from Study
  Country: DE (occurrence: DE)
  Receive Date: 20161209
  Receipt Date: 20170831
  Transmission Date: 20171127
  Serious: Yes (Death, Life-Threatening, Hospitalization)
  Sender: FDA-Public Use
  Company Number: DE-ROCHE-1865609

PATIENT
  Age: 73 Year
  Sex: Female
  Weight: 44 kg

DRUGS (13)
  1. PREDNISON [Concomitant]
     Active Substance: PREDNISONE
     Indication: DIFFUSE LARGE B-CELL LYMPHOMA
     Route: 065
     Dates: start: 20161205, end: 20161205
  2. BISOPROLOL [Concomitant]
     Active Substance: BISOPROLOL
     Indication: HYPERTENSION
     Dosage: 1-0-0
     Route: 048
     Dates: start: 20020101
  3. ALLOPURINOL. [Concomitant]
     Active Substance: ALLOPURINOL
     Indication: PROPHYLAXIS
     Dosage: 1-0-0
     Route: 048
     Dates: start: 20161129
  4. CLEXANE [Concomitant]
     Active Substance: ENOXAPARIN SODIUM
     Dosage: 1-0-1
     Route: 065
     Dates: start: 20161130
  5. CYCLOPHOSPHAMIDE. [Concomitant]
     Active Substance: CYCLOPHOSPHAMIDE
     Indication: DIFFUSE LARGE B-CELL LYMPHOMA
     Route: 065
     Dates: start: 20161205, end: 20161205
  6. VINCRISTIN [Concomitant]
     Active Substance: VINCRISTINE
     Indication: DIFFUSE LARGE B-CELL LYMPHOMA
     Route: 065
     Dates: start: 20161205, end: 20161205
  7. CANDESARTAN. [Concomitant]
     Active Substance: CANDESARTAN
     Indication: HYPERTENSION
     Dosage: 1-0-0
     Route: 048
     Dates: start: 20161128
  8. CIPROFLOXACIN. [Concomitant]
     Active Substance: CIPROFLOXACIN
     Indication: URINARY TRACT INFECTION
     Dosage: 1-0-1
     Route: 048
     Dates: start: 20161201, end: 20161203
  9. RITUXIMAB. [Suspect]
     Active Substance: RITUXIMAB
     Indication: DIFFUSE LARGE B-CELL LYMPHOMA
     Dosage: 550 MG
     Route: 042
     Dates: start: 20161205, end: 20161205
  10. RITUXIMAB. [Suspect]
     Active Substance: RITUXIMAB
     Dosage: 8 ADMINISTRATIONS IN TOTAL
     Route: 058
     Dates: start: 20170103, end: 20170509
  11. TOREM [Concomitant]
     Active Substance: TORSEMIDE
     Indication: OEDEMA PERIPHERAL
     Dosage: 1-1-0
     Route: 048
     Dates: start: 20161129
  12. DOXORUBICIN [Concomitant]
     Active Substance: DOXORUBICIN
     Indication: DIFFUSE LARGE B-CELL LYMPHOMA
     Route: 065
     Dates: start: 20161205, end: 20161205
  13. RITUXIMAB. [Suspect]
     Active Substance: RITUXIMAB
     Indication: DIFFUSE LARGE B-CELL LYMPHOMA
     Dosage: 8 ADMINISTRATIONS
     Route: 058
     Dates: start: 20161215

REACTIONS (13)
  - Jejunal perforation [Fatal]
  - Ileal perforation [Fatal]
  - Sepsis [Fatal]
  - Intestinal perforation [Unknown]
  - Multiple organ dysfunction syndrome [Fatal]
  - Herpes zoster [Not Recovered/Not Resolved]
  - Septic shock [Fatal]
  - Diffuse large B-cell lymphoma recurrent [Fatal]
  - Peritonitis [Recovered/Resolved]
  - General physical health deterioration [Fatal]
  - Pneumonia [Fatal]
  - Ileal perforation [Recovered/Resolved]
  - Lower gastrointestinal haemorrhage [Recovered/Resolved]

NARRATIVE: CASE EVENT DATE: 20161207
